FAERS Safety Report 14604728 (Version 1)
Quarter: 2018Q1

REPORT INFORMATION
  Report Type: Spontaneous
  Country: AR (occurrence: AR)
  Receive Date: 20180306
  Receipt Date: 20180306
  Transmission Date: 20180509
  Serious: Yes (Other)
  Sender: FDA-Public Use
  Company Number: AR-PFIZER INC-2018089311

PATIENT
  Age: 78 Year
  Sex: Female

DRUGS (2)
  1. IODINE. [Suspect]
     Active Substance: IODINE
     Dosage: UNK
  2. IBRANCE [Suspect]
     Active Substance: PALBOCICLIB
     Indication: BREAST CANCER METASTATIC
     Dosage: 125 MG, CYCLIC (DAILY, 3X1 SCHEDULE)
     Dates: start: 20170418

REACTIONS (5)
  - Haemorrhage [Recovering/Resolving]
  - Feeling abnormal [Not Recovered/Not Resolved]
  - Syncope [Recovering/Resolving]
  - Nervousness [Not Recovered/Not Resolved]
  - Dizziness [Not Recovered/Not Resolved]

NARRATIVE: CASE EVENT DATE: 20180223
